FAERS Safety Report 19622663 (Version 2)
Quarter: 2021Q3

REPORT INFORMATION
  Report Type: Report from Study
  Country: UA (occurrence: UA)
  Receive Date: 20210728
  Receipt Date: 20210902
  Transmission Date: 20211014
  Serious: Yes (Hospitalization)
  Sender: FDA-Public Use
  Company Number: UA-CELGENEUS-UKR-20210407536

PATIENT
  Sex: Female

DRUGS (81)
  1. BETAHISTIN [Concomitant]
     Active Substance: BETAHISTINE
     Indication: MULTIPLE SCLEROSIS
     Dosage: 48 MILLIGRAM
     Route: 048
     Dates: start: 20170904, end: 20170923
  2. BETAHISTIN [Concomitant]
     Active Substance: BETAHISTINE
     Dosage: 48 MILLIGRAM
     Route: 048
     Dates: start: 20190529, end: 20190615
  3. OMEPRAZOLE. [Concomitant]
     Active Substance: OMEPRAZOLE
     Indication: GASTRITIS PROPHYLAXIS
     Dosage: 80 MILLIGRAM
     Route: 048
     Dates: start: 20210403, end: 20210407
  4. OMEPRAZOLE. [Concomitant]
     Active Substance: OMEPRAZOLE
     Dosage: 80 MILLIGRAM
     Route: 048
     Dates: start: 20171207, end: 20171211
  5. BETAHISTIN [Concomitant]
     Active Substance: BETAHISTINE
     Indication: MULTIPLE SCLEROSIS RELAPSE
     Dosage: 48 MILLIGRAM
     Route: 048
     Dates: start: 20170406, end: 20170420
  6. AMBROXOL [Concomitant]
     Active Substance: AMBROXOL
     Indication: COVID-19 PNEUMONIA
     Dosage: 90 MILLIGRAM
     Route: 048
     Dates: start: 20210412, end: 20210413
  7. CEFPODOXIME [Concomitant]
     Active Substance: CEFPODOXIME
     Indication: COVID-19 PNEUMONIA
     Dosage: 400 MILLIGRAM
     Route: 048
     Dates: start: 20210411, end: 20210413
  8. CHLOROPYRAMINE [Concomitant]
     Active Substance: CHLOROPYRAMINE
     Indication: COVID-19
     Dosage: 25 MILLIGRAM
     Route: 048
     Dates: start: 20210403, end: 20210407
  9. OMEPRAZOLE. [Concomitant]
     Active Substance: OMEPRAZOLE
     Dosage: 80 MILLIGRAM
     Route: 048
     Dates: start: 20200828, end: 20200901
  10. DEXAMETHASONE. [Concomitant]
     Active Substance: DEXAMETHASONE
     Indication: COVID-19 PNEUMONIA
     Dosage: 8 MILLIGRAM
     Route: 030
     Dates: start: 20210404, end: 20210407
  11. DICLOFENAC [Concomitant]
     Active Substance: DICLOFENAC
     Indication: OSTEOARTHRITIS
     Route: 030
     Dates: start: 20190424, end: 20190426
  12. PROCAINE [Concomitant]
     Active Substance: PROCAINE
     Indication: LOCAL ANAESTHESIA
     Dosage: 150 MILLIGRAM
     Route: 061
     Dates: start: 20190708, end: 20190708
  13. NIMID FORTE [Concomitant]
     Indication: OSTEOARTHRITIS
     Dosage: 2 DOSAGE FORMS
     Route: 048
     Dates: start: 20191128, end: 20191202
  14. OXYBUTIN [Concomitant]
     Active Substance: OXYBUTYNIN
     Indication: MULTIPLE SCLEROSIS
     Dosage: 20 MILLIGRAM
     Route: 048
     Dates: start: 20200828, end: 20200910
  15. ENOXAPARIN [Concomitant]
     Active Substance: ENOXAPARIN
     Indication: COVID-19 PNEUMONIA
     Dosage: 100 MILLIGRAM
     Route: 058
     Dates: start: 20210411, end: 20210412
  16. THERA FLU [Concomitant]
     Indication: COVID-19 PNEUMONIA
     Dosage: 3 DOSAGE FORMS
     Route: 048
     Dates: start: 20210403, end: 20210405
  17. OMEPRAZOLE. [Concomitant]
     Active Substance: OMEPRAZOLE
     Dosage: 80 MILLIGRAM
     Route: 048
     Dates: start: 20190723
  18. OMEPRAZOLE. [Concomitant]
     Active Substance: OMEPRAZOLE
     Dosage: 80 MILLIGRAM
     Route: 048
     Dates: start: 20191128, end: 20191202
  19. DEXAMETHASONE. [Concomitant]
     Active Substance: DEXAMETHASONE
     Indication: COVID-19
     Dosage: 8 MILLIGRAM
     Route: 030
     Dates: start: 20210411, end: 20210411
  20. DEXAMETHASONE. [Concomitant]
     Active Substance: DEXAMETHASONE
     Dosage: 8 MILLIGRAM
     Route: 041
     Dates: start: 20210412, end: 20210413
  21. DEXAMETHASONE. [Concomitant]
     Active Substance: DEXAMETHASONE
     Route: 065
     Dates: start: 20210408, end: 20210410
  22. DEXAMETHASONE. [Concomitant]
     Active Substance: DEXAMETHASONE
     Dosage: 16 MILLIGRAM
     Route: 041
     Dates: start: 20210421, end: 20210426
  23. ENALAPRIL [Concomitant]
     Active Substance: ENALAPRIL
     Indication: HYPERTENSION
     Dosage: 10 MILLIGRAM
     Route: 048
     Dates: start: 20160617, end: 20190203
  24. DICLOFENAC [Concomitant]
     Active Substance: DICLOFENAC
     Dosage: 75 MILLIGRAM
     Route: 048
     Dates: start: 20190928, end: 20191202
  25. METHYLPREDNISOLONE. [Concomitant]
     Active Substance: METHYLPREDNISOLONE
     Dosage: 1000 MILLIGRAM
     Route: 041
     Dates: start: 20190529, end: 20190531
  26. METHYLPREDNISOLONE. [Concomitant]
     Active Substance: METHYLPREDNISOLONE
     Dosage: 1000 MILLIGRAM
     Route: 041
     Dates: start: 20200828, end: 20200901
  27. ONDANSETRONE [Concomitant]
     Active Substance: ONDANSETRON
     Indication: MULTIPLE SCLEROSIS RELAPSE
     Dosage: 2 MILLIGRAM
     Route: 030
     Dates: start: 20171207, end: 20171211
  28. MELOXICAM. [Concomitant]
     Active Substance: MELOXICAM
     Indication: OSTEOARTHRITIS
     Dosage: 7.5 MILLIGRAM
     Route: 048
     Dates: start: 20190424, end: 20190430
  29. DOXYCYCLINE. [Concomitant]
     Active Substance: DOXYCYCLINE
     Indication: INJECTION SITE ABSCESS
     Dosage: 200 MILLIGRAM
     Route: 048
     Dates: start: 20190624, end: 20190628
  30. BETAHISTIN [Concomitant]
     Active Substance: BETAHISTINE
     Dosage: 48 MILLIGRAM
     Route: 048
     Dates: start: 20171207, end: 20171216
  31. METOCLOPRAMIDE. [Concomitant]
     Active Substance: METOCLOPRAMIDE
     Dosage: 10 MILLIGRAM
     Route: 030
     Dates: start: 20180507, end: 20180511
  32. PROCHLORPERAZINE. [Concomitant]
     Active Substance: PROCHLORPERAZINE
     Indication: MULTIPLE SCLEROSIS
     Dosage: 5 MILLIGRAM
     Route: 048
     Dates: start: 20200828, end: 20200903
  33. FLUCONAZOLE. [Concomitant]
     Active Substance: FLUCONAZOLE
     Indication: COVID-19 PNEUMONIA
     Dosage: 100 MILLIGRAM
     Route: 048
     Dates: start: 20210412, end: 20210412
  34. OMEPRAZOLE. [Concomitant]
     Active Substance: OMEPRAZOLE
     Dosage: 80 MILLIGRAM
     Route: 048
     Dates: start: 20180507, end: 20180511
  35. DICLOFENAC [Concomitant]
     Active Substance: DICLOFENAC
     Dosage: 75 MILLIGRAM
     Route: 030
     Dates: start: 20190506, end: 20190508
  36. PLATYPHILLINE [Concomitant]
     Indication: VERTIGO
     Dosage: 2 MILLIGRAM
     Route: 058
     Dates: start: 20171207, end: 20171211
  37. METHYLPREDNISOLONE. [Concomitant]
     Active Substance: METHYLPREDNISOLONE
     Indication: MULTIPLE SCLEROSIS RELAPSE
     Dosage: 1000 MILLIGRAM
     Route: 041
     Dates: start: 20170904, end: 20170908
  38. DIOXYZOLE [Concomitant]
     Indication: ABSCESS
     Route: 061
     Dates: start: 20190627, end: 20190707
  39. RIVAROXABAN [Concomitant]
     Active Substance: RIVAROXABAN
     Indication: PROPHYLAXIS
     Dosage: 10 MILLIGRAM
     Route: 048
     Dates: start: 20210427, end: 20210502
  40. BETAHISTIN [Concomitant]
     Active Substance: BETAHISTINE
     Dosage: 48 MILLIGRAM
     Route: 048
     Dates: start: 20190723
  41. BETAHISTIN [Concomitant]
     Active Substance: BETAHISTINE
     Dosage: 72 MILLIGRAM
     Route: 048
     Dates: start: 20200730, end: 20200815
  42. BETAHISTIN [Concomitant]
     Active Substance: BETAHISTINE
     Dosage: 72 MILLIGRAM
     Route: 048
     Dates: start: 20200828, end: 20200910
  43. LINEX [Concomitant]
     Active Substance: LACTOBACILLUS ACIDOPHILUS
     Indication: COVID-19
     Dosage: 150 MILLIGRAM
     Route: 048
     Dates: start: 20210403, end: 20210407
  44. THERA FLU [Concomitant]
     Indication: ACUTE SINUSITIS
     Route: 048
     Dates: start: 20210411, end: 20210412
  45. DEXAMETHASONE. [Concomitant]
     Active Substance: DEXAMETHASONE
     Dosage: 16 MILLIGRAM
     Route: 030
     Dates: start: 20210403, end: 20210403
  46. PLATYPHILLINE [Concomitant]
     Dosage: 4 MILLIGRAM
     Route: 058
     Dates: start: 20180507, end: 20180511
  47. METHYLPREDNISOLONE. [Concomitant]
     Active Substance: METHYLPREDNISOLONE
     Dosage: 1000 MILLIGRAM
     Route: 041
     Dates: start: 20171207, end: 20171211
  48. NIMESULID [Concomitant]
     Active Substance: NIMESULIDE
     Indication: OSTEOARTHRITIS
     Dosage: 100 MILLIGRAM
     Route: 048
     Dates: start: 20190506, end: 20190510
  49. RIVAROXABAN [Concomitant]
     Active Substance: RIVAROXABAN
     Indication: COVID-19 PNEUMONIA
     Dosage: 10 MILLIGRAM
     Route: 048
     Dates: start: 20210422, end: 20210426
  50. OZANIMOD. [Suspect]
     Active Substance: OZANIMOD
     Indication: RELAPSING MULTIPLE SCLEROSIS
     Route: 048
     Dates: start: 20161130, end: 20210718
  51. DIOCOR 80 [Concomitant]
     Indication: HYPERTENSION
     Route: 048
     Dates: start: 20190204
  52. PROCHLORPERAZINE. [Concomitant]
     Active Substance: PROCHLORPERAZINE
     Indication: MULTIPLE SCLEROSIS RELAPSE
     Dosage: 2.5 MILLIGRAM
     Route: 048
     Dates: start: 20190723
  53. ACETYLCYSTEINE. [Concomitant]
     Active Substance: ACETYLCYSTEINE
     Indication: COVID-19 PNEUMONIA
     Dosage: 400 MILLIGRAM
     Route: 048
     Dates: start: 20210412, end: 20210413
  54. ASPIRIN. [Concomitant]
     Active Substance: ASPIRIN
     Indication: COVID-19
     Dosage: 75 MILLIGRAM
     Route: 048
     Dates: start: 20210403, end: 20210413
  55. THERA FLU [Concomitant]
     Indication: COVID-19
     Dosage: 2 DOSAGE FORMS
     Route: 048
     Dates: start: 20191012, end: 20191015
  56. LEVOFLOXACIN. [Concomitant]
     Active Substance: LEVOFLOXACIN
     Indication: COVID-19 PNEUMONIA
     Dosage: 500 MILLIGRAM
     Route: 041
     Dates: start: 20210412, end: 20210413
  57. DICLOFENAC [Concomitant]
     Active Substance: DICLOFENAC
     Indication: TENSION HEADACHE
     Route: 030
     Dates: start: 20170406, end: 20170408
  58. METHYLPREDNISOLONE. [Concomitant]
     Active Substance: METHYLPREDNISOLONE
     Dosage: 1000 MILLIGRAM
     Route: 041
     Dates: start: 20180507, end: 20180511
  59. CLORHEXIDINE [Concomitant]
     Indication: ABSCESS
     Route: 061
     Dates: start: 20190708, end: 20190708
  60. BUTYLSCOPOLAMINE [Concomitant]
     Active Substance: BUTYLSCOPOLAMINE
     Indication: MULTIPLE SCLEROSIS RELAPSE
     Dosage: 20 MILLIGRAM
     Route: 048
     Dates: start: 20190723, end: 20210727
  61. BACLOFEN. [Concomitant]
     Active Substance: BACLOFEN
     Indication: MULTIPLE SCLEROSIS
     Dosage: 5 MILLIGRAM
     Route: 048
     Dates: start: 20190529
  62. METOCLOPRAMIDE. [Concomitant]
     Active Substance: METOCLOPRAMIDE
     Dosage: 10 MILLIGRAM
     Route: 030
     Dates: start: 20170904, end: 20170908
  63. OMEPRAZOLE. [Concomitant]
     Active Substance: OMEPRAZOLE
     Indication: COVID-19 PNEUMONIA
     Dosage: 40 MILLIGRAM
     Route: 048
     Dates: start: 20210414, end: 20210426
  64. OMEPRAZOLE. [Concomitant]
     Active Substance: OMEPRAZOLE
     Indication: COVID-19
     Dosage: 80 MILLIGRAM
     Route: 048
     Dates: start: 20190723
  65. LEVOFLOXACIN. [Concomitant]
     Active Substance: LEVOFLOXACIN
     Route: 065
     Dates: start: 20210414, end: 20210418
  66. TRI?REGOL [Concomitant]
     Indication: CONTRACEPTION
     Route: 048
     Dates: start: 20150718, end: 20190425
  67. MEBHYDROLONE [Concomitant]
     Indication: ABSCESS
     Dosage: 100 MILLIGRAM
     Route: 048
     Dates: start: 20190624, end: 20190626
  68. BETADINE [Concomitant]
     Active Substance: POVIDONE-IODINE
     Indication: ABSCESS
     Route: 061
     Dates: start: 20190624, end: 20190720
  69. METOCLOPRAMIDE. [Concomitant]
     Active Substance: METOCLOPRAMIDE
     Indication: MULTIPLE SCLEROSIS RELAPSE
     Dosage: 20 MILLIGRAM
     Route: 048
     Dates: start: 20190723
  70. CEFPODOXIME [Concomitant]
     Active Substance: CEFPODOXIME
     Indication: COVID-19
     Dosage: 400 MILLIGRAM
     Route: 048
     Dates: start: 20210403, end: 20210407
  71. OMEPRAZOLE. [Concomitant]
     Active Substance: OMEPRAZOLE
     Dosage: 80 MILLIGRAM
     Route: 048
     Dates: start: 20170904, end: 20170908
  72. OMEPRAZOLE. [Concomitant]
     Active Substance: OMEPRAZOLE
     Dosage: 80 MILLIGRAM
     Route: 048
     Dates: start: 20190529, end: 20190531
  73. DEXAMETHASONE. [Concomitant]
     Active Substance: DEXAMETHASONE
     Dosage: 16 MILLIGRAM
     Route: 041
     Dates: start: 20210414, end: 20210420
  74. AMLODIPIN [Concomitant]
     Active Substance: AMLODIPINE BESYLATE
     Indication: HYPERTENSION
     Dosage: 2.5 MILLIGRAM
     Route: 048
     Dates: start: 20160617, end: 20190118
  75. DICLOFENAC [Concomitant]
     Active Substance: DICLOFENAC
     Route: 030
     Dates: start: 20190506, end: 20190506
  76. GIDAZEPAM [Concomitant]
     Indication: TENSION HEADACHE
     Dosage: 20 MILLIGRAM
     Route: 048
     Dates: start: 20170406, end: 20170415
  77. PLATYPHILLINE [Concomitant]
     Indication: MULTIPLE SCLEROSIS RELAPSE
     Dosage: 4 MILLIGRAM
     Route: 058
     Dates: start: 20170904, end: 20170908
  78. METHYLPREDNISOLONE. [Concomitant]
     Active Substance: METHYLPREDNISOLONE
     Dosage: 1000 MILLIGRAM
     Route: 041
     Dates: start: 20190723, end: 20190727
  79. FUROSEMIDE. [Concomitant]
     Active Substance: FUROSEMIDE
     Indication: MULTIPLE SCLEROSIS RELAPSE
     Dosage: 20 MILLIGRAM
     Route: 041
     Dates: start: 20170905, end: 20170907
  80. KETOROLAC [Concomitant]
     Active Substance: KETOROLAC TROMETHAMINE
     Indication: ABSCESS
     Route: 048
     Dates: start: 20190708, end: 20190715
  81. FLEMOCLAV [Concomitant]
     Active Substance: AMOXICILLIN\CLAVULANATE POTASSIUM
     Indication: ACUTE SINUSITIS
     Dosage: 825/125 1 TABLET
     Route: 048
     Dates: start: 20191014, end: 20191018

REACTIONS (1)
  - COVID-19 pneumonia [Recovered/Resolved]

NARRATIVE: CASE EVENT DATE: 20210411
